FAERS Safety Report 7434044-2 (Version None)
Quarter: 2011Q2

REPORT INFORMATION
  Report Type: 
  Country: None (occurrence: None)
  Receive Date: 20110425
  Receipt Date: 20110413
  Transmission Date: 20111010
  Serious: Yes (Other)
  Sender: FDA-Public Use
  Company Number: FR-AMGEN-FRASP2011008422

PATIENT
  Age: 76 Year
  Sex: Female
  Weight: 45 kg

DRUGS (5)
  1. ENBREL [Suspect]
     Indication: RHEUMATOID ARTHRITIS
     Dosage: 50 MG, QWK
     Dates: start: 20101123
  2. CORTANCYL [Concomitant]
     Indication: RHEUMATOID ARTHRITIS
     Dosage: 4 MG, 1X/DAY
     Route: 048
  3. METOJECT                           /00113801/ [Concomitant]
     Indication: RHEUMATOID ARTHRITIS
     Dosage: 1 INJECTION ONCE WEEKLY
     Route: 030
  4. METHOTREXATE [Concomitant]
     Indication: RHEUMATOID ARTHRITIS
     Dosage: 1 DF, WEEKLY
     Route: 048
  5. ENBREL [Suspect]
     Dosage: UNK, EVERY 10 DAYS
     Dates: start: 20110217, end: 20110320

REACTIONS (7)
  - PALPITATIONS [None]
  - CHEST DISCOMFORT [None]
  - DYSPNOEA [None]
  - INCORRECT DOSE ADMINISTERED [None]
  - DIZZINESS [None]
  - NOCTURNAL DYSPNOEA [None]
  - MUSCULAR WEAKNESS [None]
